FAERS Safety Report 4746973-9 (Version None)
Quarter: 2005Q3

REPORT INFORMATION
  Report Type: 
  Country: None (occurrence: None)
  Receive Date: 20050815
  Receipt Date: 20050729
  Transmission Date: 20060218
  Serious: Yes (Hospitalization)
  Sender: FDA-Public Use
  Company Number: 2005BI008150

PATIENT
  Age: 59 Year
  Sex: Female

DRUGS (27)
  1. AVONEX [Suspect]
     Indication: MULTIPLE SCLEROSIS
     Dosage: IM
     Route: 030
     Dates: start: 20030701
  2. AVONEX [Suspect]
     Indication: MULTIPLE SCLEROSIS
     Dosage: IM
     Route: 030
     Dates: end: 20041101
  3. AVONEX [Suspect]
     Indication: MULTIPLE SCLEROSIS
     Dosage: IM
     Route: 030
     Dates: end: 20041101
  4. FOSAMAX [Concomitant]
  5. DETROL LA [Concomitant]
  6. ACIPHEX [Concomitant]
  7. UNIVASC [Concomitant]
  8. LEVAQUIN [Concomitant]
  9. BACTRIM [Concomitant]
  10. BACLOFEN [Concomitant]
  11. NITROFURANTOIN [Concomitant]
  12. ASPIRIN [Concomitant]
  13. SYNTHROID [Concomitant]
  14. DITROPAN XL [Concomitant]
  15. PAXIL [Concomitant]
  16. LORATADINE [Concomitant]
  17. SUDAFED 12 HOUR [Concomitant]
  18. FLAX OIL [Concomitant]
  19. SHAKLEE MENOPAUSE BALANCE [Concomitant]
  20. VITAMIN A [Concomitant]
  21. ASCORBIC ACID [Concomitant]
  22. VITAMIN E [Concomitant]
  23. M.V.I. [Concomitant]
  24. CALCIUM GLUCONATE [Concomitant]
  25. GARLIC [Concomitant]
  26. ALFALFA [Concomitant]
  27. HERB LAX [Concomitant]

REACTIONS (7)
  - CONSTIPATION [None]
  - DEHYDRATION [None]
  - DIZZINESS [None]
  - DRUG INTOLERANCE [None]
  - GASTRITIS [None]
  - HEADACHE [None]
  - VIRAL INFECTION [None]
